FAERS Safety Report 21098333 (Version 1)
Quarter: 2022Q3

REPORT INFORMATION
  Report Type: Report from Study
  Country: DE (occurrence: DE)
  Receive Date: 20220719
  Receipt Date: 20220719
  Transmission Date: 20221027
  Serious: Yes (Other)
  Sender: FDA-Public Use
  Company Number: DE-BRISTOL-MYERS SQUIBB COMPANY-2022-065899

PATIENT
  Age: 55 Year
  Sex: Male

DRUGS (12)
  1. NIVOLUMAB [Suspect]
     Active Substance: NIVOLUMAB
     Indication: Renal cell carcinoma
     Dosage: 3MG/KG BODY WEIGHT
     Route: 042
     Dates: start: 20201113, end: 20210120
  2. IPILIMUMAB [Suspect]
     Active Substance: IPILIMUMAB
     Indication: Renal cell carcinoma
     Dosage: 1 MG/KG BODY WEIGHT
     Route: 042
     Dates: start: 20201113, end: 20210120
  3. FRESUBIN [CAFFEINE;CARBOHYDRATES NOS;FATS NOS;FIBRE, DIETARY;MINERALS [Concomitant]
     Indication: Product used for unknown indication
     Dosage: SIP-FEEDING, DRINK
     Route: 065
     Dates: start: 20210525, end: 20210614
  4. ENOXAPARIN SODIUM [Concomitant]
     Active Substance: ENOXAPARIN SODIUM
     Indication: Prophylaxis
     Dosage: SYRINGE
     Route: 065
     Dates: end: 20210614
  5. ALENDRONIC ACID [Concomitant]
     Active Substance: ALENDRONIC ACID
     Indication: Neoplasm
     Dosage: EVERY 7TH DAY
     Route: 065
     Dates: start: 20201113, end: 20210614
  6. PANTOPRAZOLE [Concomitant]
     Active Substance: PANTOPRAZOLE
     Indication: Prophylaxis
     Route: 065
     Dates: end: 20210614
  7. AMITRIPTYLINE HYDROCHLORIDE [Concomitant]
     Active Substance: AMITRIPTYLINE HYDROCHLORIDE
     Indication: Neoplasm
     Route: 065
     Dates: end: 20210614
  8. PREGABALIN [Concomitant]
     Active Substance: PREGABALIN
     Indication: Neoplasm
     Route: 065
     Dates: end: 20210614
  9. METAMIZOLE SODIUM [Concomitant]
     Active Substance: METAMIZOLE SODIUM
     Indication: Neoplasm
     Dosage: 2 - 2 - 2 - 2
     Route: 065
     Dates: end: 20210614
  10. MORPHINE [Concomitant]
     Active Substance: MORPHINE
     Indication: Neoplasm
     Route: 065
     Dates: end: 20210614
  11. MORPHINE SULFATE [Concomitant]
     Active Substance: MORPHINE SULFATE
     Indication: Neoplasm
     Dosage: 5 - 5 - 5
     Route: 065
     Dates: end: 20210614
  12. DENOSUMAB [Concomitant]
     Active Substance: DENOSUMAB
     Indication: Neoplasm
     Route: 065
     Dates: start: 20210318, end: 20210318

REACTIONS (3)
  - Decreased appetite [Not Recovered/Not Resolved]
  - Malignant neoplasm progression [Unknown]
  - Cachexia [Unknown]

NARRATIVE: CASE EVENT DATE: 20210217
